FAERS Safety Report 22912462 (Version 2)
Quarter: 2023Q4

REPORT INFORMATION
  Report Type: Spontaneous
  Country: KR (occurrence: KR)
  Receive Date: 20230906
  Receipt Date: 20231027
  Transmission Date: 20240110
  Serious: No
  Sender: FDA-Public Use
  Company Number: KR-PFIZER INC-PV202300142914

PATIENT
  Age: 9 Year
  Sex: Female

DRUGS (2)
  1. GENOTROPIN [Suspect]
     Active Substance: SOMATROPIN
     Indication: Short stature
     Dosage: 5 IU, 6 TIMES PER WEEK
     Dates: start: 202304
  2. GENOTROPIN [Suspect]
     Active Substance: SOMATROPIN
     Dosage: 5 IU, 6 TIMES PER WEEK
     Dates: start: 202304

REACTIONS (2)
  - Poor quality device used [Unknown]
  - Device deposit issue [Unknown]

NARRATIVE: CASE EVENT DATE: 20230101
